FAERS Safety Report 6755832-1 (Version None)
Quarter: 2010Q2

REPORT INFORMATION
  Report Type: 
  Country: None (occurrence: None)
  Receive Date: 20100524
  Receipt Date: 20100304
  Transmission Date: 20101027
  Serious: No
  Sender: FDA-Public Use
  Company Number: 008257

PATIENT
  Sex: Female

DRUGS (17)
  1. CIMZIA [Suspect]
     Indication: CROHN'S DISEASE
     Dosage: (400 MG SUBCUTANEOUS)
     Route: 058
     Dates: start: 20091201
  2. TYLENOL W/ CODEINE [Concomitant]
  3. ACTONEL [Concomitant]
  4. ADVAIR DISKUS 100/50 [Concomitant]
  5. CALCIUM CARBONATE [Concomitant]
  6. COMPAZINE SPANSULE [Concomitant]
  7. NEXIUM [Concomitant]
  8. METOPROLOL [Concomitant]
  9. POTASSIUM [Concomitant]
  10. ALBUTEROL [Concomitant]
  11. VITAMIN C /00008001/ [Concomitant]
  12. FLEXERIL [Concomitant]
  13. GABAPENTIN [Concomitant]
  14. HYDROCODONE BITARTRATE [Concomitant]
  15. KEFLEX /00145501/ [Concomitant]
  16. VITAMIN D [Concomitant]
  17. VITAMIN E /00110501/ [Concomitant]

REACTIONS (1)
  - DYSPNOEA [None]
